FAERS Safety Report 23911413 (Version 2)
Quarter: 2024Q2

REPORT INFORMATION
  Report Type: Spontaneous
  Country: CN (occurrence: CN)
  Receive Date: 20240528
  Receipt Date: 20240531
  Transmission Date: 20240715
  Serious: Yes (Hospitalization)
  Sender: FDA-Public Use
  Company Number: CN-002147023-NVSC2024CN109866

PATIENT
  Age: 48 Year
  Sex: Female
  Weight: 55 kg

DRUGS (2)
  1. TOBRADEX [Suspect]
     Active Substance: DEXAMETHASONE\TOBRAMYCIN
     Indication: Ocular discomfort
     Dosage: 1 DRP (1X2)
     Route: 047
     Dates: start: 20240410, end: 20240510
  2. TOBRADEX [Suspect]
     Active Substance: DEXAMETHASONE\TOBRAMYCIN
     Indication: Blepharitis

REACTIONS (6)
  - Eye disorder [Recovering/Resolving]
  - Sensation of foreign body [Recovering/Resolving]
  - Blepharitis [Recovering/Resolving]
  - Vision blurred [Recovering/Resolving]
  - Dry eye [Recovering/Resolving]
  - Glaucoma [Recovering/Resolving]

NARRATIVE: CASE EVENT DATE: 20240511
